FAERS Safety Report 19507925 (Version 3)
Quarter: 2022Q1

REPORT INFORMATION
  Report Type: Spontaneous
  Country: US (occurrence: US)
  Receive Date: 20210708
  Receipt Date: 20220131
  Transmission Date: 20220423
  Serious: Yes (Other)
  Sender: FDA-Public Use
  Company Number: US-PFIZER INC-2021813400

PATIENT
  Age: 52 Year
  Sex: Male

DRUGS (1)
  1. XELJANZ [Suspect]
     Active Substance: TOFACITINIB CITRATE
     Indication: Rheumatoid arthritis
     Dosage: 5 MG, 2X/DAY
     Route: 048
     Dates: start: 2018

REACTIONS (11)
  - Rib fracture [Unknown]
  - Fall [Unknown]
  - Drug ineffective [Unknown]
  - Product dose omission issue [Unknown]
  - Dyspepsia [Unknown]
  - Increased tendency to bruise [Unknown]
  - Peripheral swelling [Recovered/Resolved]
  - Pain [Unknown]
  - Swelling [Unknown]
  - Depression [Recovered/Resolved]
  - Balance disorder [Unknown]
